FAERS Safety Report 25536913 (Version 1)
Quarter: 2025Q3

REPORT INFORMATION
  Report Type: Spontaneous
  Country: US (occurrence: US)
  Receive Date: 20250710
  Receipt Date: 20250710
  Transmission Date: 20251021
  Serious: No
  Sender: TEVA
  Company Number: US-TEVA-VS-3349835

PATIENT

DRUGS (1)
  1. DEXTROAMPHETAMINE SACCHARATE, AMPHETAMINE ASPARTATE, DEXTROAMPHETAMINE [Suspect]
     Active Substance: AMPHETAMINE ASPARTATE\AMPHETAMINE SULFATE\DEXTROAMPHETAMINE SACCHARATE\DEXTROAMPHETAMINE SULFATE
     Indication: Product used for unknown indication
     Route: 048
     Dates: start: 2025

REACTIONS (10)
  - Brain fog [Unknown]
  - Depression [Unknown]
  - Product physical issue [Unknown]
  - Throat tightness [Unknown]
  - Tremor [Unknown]
  - Anxiety [Unknown]
  - Toothache [Unknown]
  - Feeling abnormal [Unknown]
  - Product colour issue [Unknown]
  - Headache [Unknown]

NARRATIVE: CASE EVENT DATE: 20250701
